FAERS Safety Report 23321752 (Version 1)
Quarter: 2023Q4

REPORT INFORMATION
  Report Type: Spontaneous
  Country: US (occurrence: None)
  Receive Date: 20231219
  Receipt Date: 20231219
  Transmission Date: 20240110
  Serious: Yes (unspecified)
  Sender: FDA-Public Use
  Company Number: None

PATIENT
  Sex: Female

DRUGS (1)
  1. CYANOCOBALAMIN\SEMAGLUTIDE [Suspect]
     Active Substance: CYANOCOBALAMIN\SEMAGLUTIDE
     Indication: Body mass index
     Dosage: OTHER QUANTITY : TITRATING;?FREQUENCY : WEEKLY;?
     Route: 058
     Dates: start: 202301, end: 202308

REACTIONS (3)
  - Abdominal pain [None]
  - Nephrolithiasis [None]
  - Appendix cancer [None]
